FAERS Safety Report 8981425 (Version 2)
Quarter: 2013Q1

REPORT INFORMATION
  Report Type: Spontaneous
  Country: DE (occurrence: DE)
  Receive Date: 20121221
  Receipt Date: 20130314
  Transmission Date: 20140127
  Serious: Yes (Other)
  Sender: FDA-Public Use
  Company Number: DE-B.I. PHARMACEUTICALS,INC./RIDGEFIELD-2012-DE-03020DE

PATIENT
  Age: 64 Year
  Sex: Female

DRUGS (2)
  1. PRADAXA [Suspect]
     Indication: CAROTID ARTERY STENOSIS
     Dosage: 220 MG
     Dates: start: 20121129, end: 20121213
  2. LITALIR [Concomitant]

REACTIONS (2)
  - Thrombocytopenia [Recovered/Resolved]
  - Platelet count decreased [Recovered/Resolved]
